FAERS Safety Report 8586006-X (Version None)
Quarter: 2012Q3

REPORT INFORMATION
  Report Type: 
  Country: None (occurrence: None)
  Receive Date: 20120810
  Receipt Date: 20120808
  Transmission Date: 20120928
  Serious: Yes (Hospitalization)
  Sender: FDA-Public Use
  Company Number: US-ACTELION-A-US2012-67692

PATIENT
  Age: 52 Year
  Sex: Male

DRUGS (8)
  1. SPIRONOLACTONE [Concomitant]
  2. LASIX [Concomitant]
  3. ASPIRIN [Concomitant]
  4. SILDENAFIL [Concomitant]
  5. CALCIUM CHANNEL BLOCKERS [Concomitant]
  6. VENTAVIS [Suspect]
     Indication: PULMONARY ARTERIAL HYPERTENSION
     Dosage: UNK
     Route: 055
  7. COUMADIN [Concomitant]
  8. DIGOXIN [Concomitant]

REACTIONS (7)
  - LIP SWELLING [None]
  - OEDEMA [None]
  - OEDEMA PERIPHERAL [None]
  - PAIN IN EXTREMITY [None]
  - DYSPNOEA EXERTIONAL [None]
  - DYSPNOEA [None]
  - EYE SWELLING [None]
